FAERS Safety Report 7463419-0 (Version None)
Quarter: 2011Q2

REPORT INFORMATION
  Report Type: 
  Country: None (occurrence: None)
  Receive Date: 20110506
  Receipt Date: 20110427
  Transmission Date: 20111010
  Serious: Yes (Other)
  Sender: FDA-Public Use
  Company Number: B0707001A

PATIENT
  Sex: Male
  Weight: 68 kg

DRUGS (5)
  1. NORVIR [Concomitant]
     Indication: HIV INFECTION
     Dosage: 200MG PER DAY
     Route: 048
     Dates: start: 20090928
  2. SELZENTRY [Suspect]
     Indication: HIV INFECTION
     Dosage: 150MG TWICE PER DAY
     Route: 048
     Dates: start: 20110128, end: 20110318
  3. INTELENCE [Concomitant]
     Indication: HIV INFECTION
     Dosage: 400MG PER DAY
     Route: 048
     Dates: start: 20091123
  4. ISENTRESS [Concomitant]
     Indication: HIV INFECTION
     Dosage: 800MG PER DAY
     Route: 048
     Dates: start: 20090928
  5. PREZISTA [Concomitant]
     Indication: HIV INFECTION
     Dosage: 1200MG PER DAY
     Route: 048
     Dates: start: 20090928

REACTIONS (5)
  - ALANINE AMINOTRANSFERASE INCREASED [None]
  - HEPATOCELLULAR INJURY [None]
  - ASPARTATE AMINOTRANSFERASE INCREASED [None]
  - BLOOD CREATINE PHOSPHOKINASE INCREASED [None]
  - FATIGUE [None]
